FAERS Safety Report 19013479 (Version 3)
Quarter: 2021Q1

REPORT INFORMATION
  Report Type: Spontaneous
  Country: JP (occurrence: JP)
  Receive Date: 20210315
  Receipt Date: 20210325
  Transmission Date: 20210420
  Serious: Yes (Death, Other)
  Sender: FDA-Public Use
  Company Number: JP-GILEAD-2021-0520553

PATIENT
  Age: 87 Year
  Sex: Female

DRUGS (9)
  1. VEKLURY [Suspect]
     Active Substance: REMDESIVIR
     Indication: COVID-19
     Dosage: 100 MG, QD
     Route: 041
     Dates: start: 20210310, end: 20210313
  2. AVIGAN [Concomitant]
     Active Substance: FAVIPIRAVIR
     Indication: COVID-19
     Dosage: 800 MG, BID
     Route: 048
     Dates: start: 20210305, end: 20210309
  3. DECADRON [Concomitant]
     Active Substance: DEXAMETHASONE
     Indication: COVID-19
     Dosage: 8 MG, QD
     Route: 048
     Dates: start: 20210305, end: 20210309
  4. FENTANYL [FENTANYL CITRATE] [Concomitant]
     Active Substance: FENTANYL CITRATE
     Indication: SEDATIVE THERAPY
     Dosage: 1.5 MG, QD
     Route: 041
     Dates: start: 20210305, end: 20210316
  5. NOREPINEPHRINE. [Concomitant]
     Active Substance: NOREPINEPHRINE
     Indication: BLOOD PRESSURE DECREASED
     Dosage: UNK
     Route: 041
     Dates: start: 20210305, end: 20210316
  6. GABEXATE MESILATE [Concomitant]
     Active Substance: GABEXATE MESYLATE
     Indication: DISSEMINATED INTRAVASCULAR COAGULATION
     Dosage: 1000 MG, QD
     Route: 041
     Dates: start: 20210305, end: 20210314
  7. PROPOFOL. [Concomitant]
     Active Substance: PROPOFOL
     Indication: SEDATIVE THERAPY
     Dosage: 6 G, QD
     Route: 041
     Dates: start: 20210305, end: 20210315
  8. DEXART [Concomitant]
     Active Substance: DEXAMETHASONE SODIUM PHOSPHATE
     Indication: COVID-19
     Dosage: 6.6 MG
     Route: 041
     Dates: start: 20210305, end: 20210313
  9. OMEPRAZOLE. [Concomitant]
     Active Substance: OMEPRAZOLE
     Indication: PROPHYLAXIS
     Dosage: 20 MG, BID
     Route: 041
     Dates: start: 20210305, end: 20210315

REACTIONS (2)
  - Disseminated intravascular coagulation [Fatal]
  - COVID-19 [Fatal]

NARRATIVE: CASE EVENT DATE: 202103
